FAERS Safety Report 16309618 (Version 1)
Quarter: 2019Q2

REPORT INFORMATION
  Report Type: Spontaneous
  Country: GB (occurrence: GB)
  Receive Date: 20190514
  Receipt Date: 20190514
  Transmission Date: 20190711
  Serious: Yes (Disabling)
  Sender: FDA-Public Use
  Company Number: GB-TORRENT-00010101

PATIENT
  Age: 92 Year
  Sex: Female
  Weight: 65 kg

DRUGS (3)
  1. FOLIC ACID. [Concomitant]
     Active Substance: FOLIC ACID
     Indication: PRODUCT USED FOR UNKNOWN INDICATION
     Dosage: UNKNOWN
     Dates: start: 20131217, end: 20140320
  2. TERBINAFINE. [Concomitant]
     Active Substance: TERBINAFINE
     Indication: PRODUCT USED FOR UNKNOWN INDICATION
     Dosage: UNKNOWN
     Dates: start: 20140320
  3. DONEPEZIL. [Suspect]
     Active Substance: DONEPEZIL
     Indication: PRODUCT USED FOR UNKNOWN INDICATION
     Dosage: DRUG START PERIOD: 93 DAYS
     Dates: start: 20131217

REACTIONS (4)
  - Nasopharyngitis [Recovering/Resolving]
  - Decreased appetite [Recovering/Resolving]
  - Rhinorrhoea [Recovering/Resolving]
  - Social avoidant behaviour [Recovering/Resolving]

NARRATIVE: CASE EVENT DATE: 20140320
